FAERS Safety Report 17559724 (Version 1)
Quarter: 2020Q1

REPORT INFORMATION
  Report Type: Spontaneous
  Country: US (occurrence: US)
  Receive Date: 20200319
  Receipt Date: 20200319
  Transmission Date: 20200409
  Serious: Yes (Hospitalization)
  Sender: FDA-Public Use
  Company Number: US-SA-2020SA068259

PATIENT
  Age: 49 Year
  Sex: Female

DRUGS (1)
  1. LANTUS SOLOSTAR [Suspect]
     Active Substance: INSULIN GLARGINE
     Indication: TYPE 2 DIABETES MELLITUS
     Dosage: 20 IU, HS
     Route: 065
     Dates: start: 20200309

REACTIONS (3)
  - Wrong technique in device usage process [Unknown]
  - Hospitalisation [Unknown]
  - Product storage error [Unknown]
